FAERS Safety Report 5020819-6 (Version None)
Quarter: 2006Q2

REPORT INFORMATION
  Report Type: 
  Country: None (occurrence: None)
  Receive Date: 20060608
  Receipt Date: 20060530
  Transmission Date: 20061013
  Serious: Yes (Other)
  Sender: FDA-Public Use
  Company Number: GB-BRISTOL-MYERS SQUIBB COMPANY-13402003

PATIENT
  Sex: Male
  Weight: 103 kg

DRUGS (5)
  1. METFORMIN HYDROCHLORIDE [Suspect]
     Indication: DIABETES MELLITUS NON-INSULIN-DEPENDENT
     Route: 048
     Dates: start: 20060314, end: 20060505
  2. ACETAMINOPHEN W/ CODEINE [Concomitant]
     Indication: SCIATICA
     Dosage: DOSAGE FORM= 30/500
     Route: 048
     Dates: start: 20030801
  3. DICLOFENAC POTASSIUM [Concomitant]
     Indication: SCIATICA
     Route: 048
     Dates: start: 20030801
  4. SILDENAFIL CITRATE [Concomitant]
     Indication: ERECTILE DYSFUNCTION
     Route: 048
     Dates: start: 20040101
  5. SIMVASTATIN [Concomitant]
     Indication: HYPERLIPIDAEMIA
     Route: 048
     Dates: start: 20040801

REACTIONS (8)
  - ABDOMINAL DISTENSION [None]
  - BLOOD GLUCOSE INCREASED [None]
  - DYSGEUSIA [None]
  - HYPOAESTHESIA [None]
  - HYPOGLYCAEMIA [None]
  - MUSCLE SPASMS [None]
  - PAIN [None]
  - STOMACH DISCOMFORT [None]
